FAERS Safety Report 9803623 (Version 1)
Quarter: 2014Q1

REPORT INFORMATION
  Report Type: Spontaneous
  Country: US (occurrence: US)
  Receive Date: 20140108
  Receipt Date: 20140108
  Transmission Date: 20141002
  Serious: Yes (Other)
  Sender: FDA-Public Use
  Company Number: US-GLAXOSMITHKLINE-A1014448A

PATIENT
  Age: 62 Year
  Sex: Female

DRUGS (17)
  1. LOVAZA [Suspect]
     Indication: PRODUCT USED FOR UNKNOWN INDICATION
     Dosage: 1G UNKNOWN
     Route: 048
     Dates: start: 20120820
  2. XANAX [Concomitant]
  3. NATEGLINIDE [Concomitant]
  4. TRAMADOL HYDROCHLORIDE [Concomitant]
  5. OMEPRAZOLE [Concomitant]
  6. ZOCOR [Concomitant]
  7. LASIX [Concomitant]
  8. LOPRESSOR [Concomitant]
  9. PROMETHAZINE [Concomitant]
  10. ATROVENT [Concomitant]
  11. CARAFATE [Concomitant]
  12. LEVOTHYROXINE [Concomitant]
  13. BENZONATATE [Concomitant]
  14. AMOXICILLIN TRIHYDRATE + POTASSIUM CLAVULANATE [Concomitant]
  15. TRILIPIX [Concomitant]
  16. COUMADIN [Concomitant]
  17. LISINOPRIL [Concomitant]

REACTIONS (2)
  - Sinus disorder [Unknown]
  - Investigation [Unknown]
